FAERS Safety Report 20223726 (Version 1)
Quarter: 2021Q4

REPORT INFORMATION
  Report Type: Spontaneous
  Country: MY (occurrence: MY)
  Receive Date: 20211223
  Receipt Date: 20211223
  Transmission Date: 20220303
  Serious: Yes (Other)
  Sender: FDA-Public Use
  Company Number: MY-AMERICAN REGENT INC-2021003347

PATIENT
  Age: 48 Year
  Sex: Female

DRUGS (1)
  1. VENOFER [Suspect]
     Active Substance: IRON SUCROSE
     Indication: Immunisation
     Dosage: 5 DOSAGE FORMS (20 MG/ML)

REACTIONS (3)
  - Generalised tonic-clonic seizure [Unknown]
  - Urticaria [Unknown]
  - Product use in unapproved indication [Unknown]
